FAERS Safety Report 10330639 (Version 1)
Quarter: 2014Q3

REPORT INFORMATION
  Report Type: Spontaneous
  Country: US (occurrence: None)
  Receive Date: 20140718
  Receipt Date: 20140718
  Transmission Date: 20150326
  Serious: Yes (Disabling, Other)
  Sender: FDA-Public Use
  Company Number: None

PATIENT
  Age: 76 Year
  Sex: Male
  Weight: 90.72 kg

DRUGS (11)
  1. SOURCE OF LIFE VITAMINS (NO IRON) [Concomitant]
  2. TERAZOSIN [Concomitant]
     Active Substance: TERAZOSIN\TERAZOSIN HYDROCHLORIDE
  3. METOPROLOL [Concomitant]
     Active Substance: METOPROLOL
  4. SIMVASTATIN. [Concomitant]
     Active Substance: SIMVASTATIN
  5. PANTOPRAZOLE [Concomitant]
     Active Substance: PANTOPRAZOLE SODIUM
  6. ELIQUIS [Suspect]
     Active Substance: APIXABAN
     Indication: ATRIAL FIBRILLATION
     Dosage: 2 PILLS
     Route: 048
     Dates: end: 20140710
  7. ELIQUIS [Concomitant]
     Active Substance: APIXABAN
  8. FUROSEMIDE. [Concomitant]
     Active Substance: FUROSEMIDE
  9. OXYBUTYNIN [Concomitant]
     Active Substance: OXYBUTYNIN
  10. AMLODIPINE BESYLATE. [Concomitant]
     Active Substance: AMLODIPINE BESYLATE
  11. RANITIDINE [Concomitant]
     Active Substance: RANITIDINE\RANITIDINE HYDROCHLORIDE

REACTIONS (7)
  - Paraesthesia [None]
  - Joint swelling [None]
  - Back pain [None]
  - Arthralgia [None]
  - Dyspepsia [None]
  - Diarrhoea [None]
  - Muscle tightness [None]

NARRATIVE: CASE EVENT DATE: 201312
